FAERS Safety Report 4627594-5 (Version None)
Quarter: 2005Q2

REPORT INFORMATION
  Report Type: 
  Country: None (occurrence: None)
  Receive Date: 20050405
  Receipt Date: 20050318
  Transmission Date: 20051028
  Serious: Yes (Hospitalization)
  Sender: FDA-Public Use
  Company Number: 200510790BCC

PATIENT
  Age: 67 Year
  Sex: Male
  Weight: 111.1313 kg

DRUGS (2)
  1. ALEVE [Suspect]
     Indication: BACK PAIN
     Dosage: 440 MG, TOTAL DAILY, ORAL
     Route: 048
     Dates: start: 20041110, end: 20041117
  2. BAYER BABY ASPIRIN (ACETYLSALICYLIC ACID) [Suspect]

REACTIONS (14)
  - ABDOMINAL DISCOMFORT [None]
  - ARTERIOVENOUS MALFORMATION [None]
  - ASTHENIA [None]
  - BLOOD PRESSURE DECREASED [None]
  - DIVERTICULAR HERNIA [None]
  - DIZZINESS [None]
  - FLATULENCE [None]
  - GASTRIC DISORDER [None]
  - GASTROINTESTINAL DISORDER [None]
  - HAEMATOCHEZIA [None]
  - LYMPHANGIECTASIA [None]
  - PALLOR [None]
  - POSITRON EMISSION TOMOGRAM ABNORMAL [None]
  - SMALL INTESTINAL HAEMORRHAGE [None]
